FAERS Safety Report 24686172 (Version 2)
Quarter: 2025Q2

REPORT INFORMATION
  Report Type: Report from Study
  Country: US (occurrence: US)
  Receive Date: 20241202
  Receipt Date: 20250626
  Transmission Date: 20250716
  Serious: No
  Sender: AVERITAS
  Company Number: US-GRUNENTHAL-2024-137050

PATIENT
  Sex: Male

DRUGS (2)
  1. QUTENZA [Suspect]
     Active Substance: CAPSAICIN
     Indication: Pain
     Route: 061
  2. QUTENZA [Suspect]
     Active Substance: CAPSAICIN
     Route: 061

REACTIONS (2)
  - Application site paraesthesia [Unknown]
  - Application site pain [Unknown]
